FAERS Safety Report 6592358-2 (Version None)
Quarter: 2010Q1

REPORT INFORMATION
  Report Type: 
  Country: None (occurrence: None)
  Receive Date: 20100221
  Receipt Date: 20091022
  Transmission Date: 20100710
  Serious: Yes (Disabling)
  Sender: FDA-Public Use
  Company Number: US-ALLERGAN-0912974US

PATIENT
  Sex: Female

DRUGS (4)
  1. BOTOX [Suspect]
     Indication: DYSTONIA
     Dosage: 400 UNITS, SINGLE
     Route: 030
     Dates: start: 20090917, end: 20090917
  2. BOTOX [Suspect]
     Dosage: UNK
     Route: 030
     Dates: start: 20090304, end: 20090304
  3. BOTOX [Suspect]
     Dosage: UNK
     Route: 030
  4. CLONAZEPAM [Suspect]
     Indication: DYSTONIA
     Dosage: 2 MG, QD

REACTIONS (2)
  - RASH PRURITIC [None]
  - THERAPEUTIC RESPONSE DECREASED [None]
